FAERS Safety Report 7889879-9 (Version None)
Quarter: 2011Q4

REPORT INFORMATION
  Report Type: 
  Country: None (occurrence: None)
  Receive Date: 20111103
  Receipt Date: 20111025
  Transmission Date: 20120403
  Serious: Yes (Other)
  Sender: FDA-Public Use
  Company Number: JP-GLAXOSMITHKLINE-B0755274A

PATIENT
  Sex: Female

DRUGS (15)
  1. REQUIP [Suspect]
     Dosage: 7MG PER DAY
     Route: 048
  2. REQUIP [Suspect]
     Dosage: 8MG PER DAY
     Route: 048
  3. ZOLPIDEM [Concomitant]
     Dosage: 10MG PER DAY
     Route: 048
  4. FOIPAN [Concomitant]
     Dosage: 400MG PER DAY
     Route: 048
  5. REQUIP [Suspect]
     Dosage: 6MG PER DAY
     Route: 048
     Dates: start: 20110101
  6. SENNOSIDE [Concomitant]
     Dosage: 24MG PER DAY
     Route: 048
  7. MAGMITT [Concomitant]
     Dosage: 990MG PER DAY
     Route: 048
  8. RABEPRAZOLE SODIUM [Concomitant]
     Dosage: 10MG PER DAY
     Route: 048
  9. HALCION [Concomitant]
     Dosage: .25MG PER DAY
     Route: 048
  10. NITRAZEPAM [Concomitant]
     Dosage: 10MG PER DAY
     Route: 048
  11. LEXOTAN [Concomitant]
     Dosage: 6MG PER DAY
     Route: 048
  12. GASMOTIN [Concomitant]
     Dosage: 15MG PER DAY
     Route: 048
  13. REQUIP [Suspect]
     Indication: PARKINSON'S DISEASE
     Dosage: 4MG PER DAY
     Route: 048
  14. ROHYPNOL [Concomitant]
     Dosage: 4MG PER DAY
     Route: 048
  15. LITHIUM CARBONATE [Concomitant]
     Dosage: 800MG PER DAY
     Route: 048

REACTIONS (1)
  - SUDDEN ONSET OF SLEEP [None]
